FAERS Safety Report 25031716 (Version 2)
Quarter: 2025Q2

REPORT INFORMATION
  Report Type: Spontaneous
  Country: US (occurrence: US)
  Receive Date: 20250303
  Receipt Date: 20250527
  Transmission Date: 20250716
  Serious: Yes (Other)
  Sender: PFIZER
  Company Number: US-PFIZER INC-202500046973

PATIENT
  Age: 84 Year
  Sex: Male
  Weight: 77.551 kg

DRUGS (2)
  1. TALZENNA [Suspect]
     Active Substance: TALAZOPARIB TOSYLATE
     Indication: Prostate cancer stage IV
     Dosage: 0.5 MG CAP 1 CAP PO (PER ORAL) DAILY
     Route: 048
  2. TALZENNA [Suspect]
     Active Substance: TALAZOPARIB TOSYLATE
     Dosage: 0.25 MG CAPSULE 2 CAPSULE ORALLY DAILY
     Route: 048

REACTIONS (2)
  - Metastases to bone [Unknown]
  - Metastases to lymph nodes [Unknown]
